FAERS Safety Report 10459713 (Version 1)
Quarter: 2014Q3

REPORT INFORMATION
  Report Type: Spontaneous
  Country: US (occurrence: US)
  Receive Date: 20140917
  Receipt Date: 20140917
  Transmission Date: 20150326
  Serious: Yes (Hospitalization)
  Sender: FDA-Public Use
  Company Number: US-GLAXOSMITHKLINE-A0849762A

PATIENT
  Sex: Female
  Weight: 103.6 kg

DRUGS (4)
  1. GLIPIZIDE. [Concomitant]
     Active Substance: GLIPIZIDE
  2. ENALAPRIL [Concomitant]
     Active Substance: ENALAPRIL
  3. GLUCOPHAGE [Concomitant]
     Active Substance: METFORMIN HYDROCHLORIDE
  4. AVANDIA [Suspect]
     Active Substance: ROSIGLITAZONE MALEATE
     Indication: DIABETES MELLITUS
     Dosage: 4MG PER DAY
     Route: 048
     Dates: start: 200610, end: 200612

REACTIONS (5)
  - Angina unstable [Unknown]
  - Cardiomyopathy [Unknown]
  - Cardiac failure congestive [Unknown]
  - Coronary artery disease [Unknown]
  - Cardiomegaly [Unknown]
